FAERS Safety Report 21931633 (Version 1)
Quarter: 2023Q1

REPORT INFORMATION
  Report Type: Spontaneous
  Country: US (occurrence: None)
  Receive Date: 20230130
  Receipt Date: 20230130
  Transmission Date: 20230417
  Serious: Yes (Life-Threatening, Other)
  Sender: FDA-Public Use
  Company Number: None

PATIENT
  Age: 36 Year
  Sex: Female
  Weight: 119.25 kg

DRUGS (1)
  1. FARXIGA [Suspect]
     Active Substance: DAPAGLIFLOZIN PROPANEDIOL
     Indication: Type 2 diabetes mellitus
     Dosage: OTHER QUANTITY : 1 TABLET(S);?
     Route: 048
     Dates: start: 20220612, end: 20230125

REACTIONS (9)
  - Migraine [None]
  - Fatigue [None]
  - Dyspnoea [None]
  - Panic attack [None]
  - Nausea [None]
  - Vomiting [None]
  - Abdominal pain upper [None]
  - Urinary tract infection [None]
  - Fungal infection [None]

NARRATIVE: CASE EVENT DATE: 20230124
